FAERS Safety Report 4755100-3 (Version None)
Quarter: 2005Q3

REPORT INFORMATION
  Report Type: 
  Country: None (occurrence: None)
  Receive Date: 20050826
  Receipt Date: 20050811
  Transmission Date: 20060218
  Serious: Yes (Life-Threatening)
  Sender: FDA-Public Use
  Company Number: 05-08-1413

PATIENT
  Age: 28 Year
  Sex: Male

DRUGS (7)
  1. DIAZEPAM [Suspect]
     Indication: AGITATION
     Dosage: 2.5MG ORAL
     Route: 048
     Dates: start: 20050723, end: 20050723
  2. GAVISCON [Concomitant]
  3. LANSOPRAZOLE [Concomitant]
  4. PARACETAMOL [Concomitant]
  5. CHROMOGLICATE SODIUM [Concomitant]
  6. DOMPERIDONE [Concomitant]
  7. LACTULOSE [Concomitant]

REACTIONS (2)
  - CYANOSIS [None]
  - RESPIRATORY RATE DECREASED [None]
